FAERS Safety Report 24764285 (Version 2)
Quarter: 2024Q4

REPORT INFORMATION
  Report Type: Spontaneous
  Country: PT (occurrence: PT)
  Receive Date: 20241223
  Receipt Date: 20241230
  Transmission Date: 20250114
  Serious: Yes (Hospitalization, Other)
  Sender: ROCHE
  Company Number: PT-ROCHE-10000158029

PATIENT
  Age: 70 Year
  Sex: Male

DRUGS (2)
  1. MYCOPHENOLATE MOFETIL [Suspect]
     Active Substance: MYCOPHENOLATE MOFETIL
     Indication: Rheumatoid arthritis
     Route: 065
  2. MEROPENEM [Concomitant]
     Active Substance: MEROPENEM

REACTIONS (6)
  - Sepsis [Unknown]
  - Intervertebral discitis [Unknown]
  - Hypertension [Unknown]
  - Diabetes mellitus [Unknown]
  - Endocarditis [Unknown]
  - Cardiac failure [Unknown]
